FAERS Safety Report 7685676-8 (Version None)
Quarter: 2011Q3

REPORT INFORMATION
  Report Type: 
  Country: None (occurrence: None)
  Receive Date: 20110815
  Receipt Date: 20110815
  Transmission Date: 20111222
  Serious: Yes (Disabling)
  Sender: FDA-Public Use
  Company Number: None

PATIENT
  Age: 61 Year
  Sex: Female
  Weight: 29.4838 kg

DRUGS (1)
  1. MYCAMINE [Suspect]
     Indication: FUNGAL INFECTION
     Dosage: 1 BAG ONCE A DAY
     Dates: start: 20110310, end: 20110320

REACTIONS (2)
  - DYSPNOEA [None]
  - CARDIAC DISORDER [None]
